FAERS Safety Report 9523045 (Version 2)
Quarter: 2013Q4

REPORT INFORMATION
  Report Type: Spontaneous
  Country: GB (occurrence: None)
  Receive Date: 20130821
  Receipt Date: 20131024
  Transmission Date: 20140711
  Serious: Yes (Other)
  Sender: FDA-Public Use
  Company Number: 2013037571

PATIENT
  Age: 79 Year
  Sex: 0

DRUGS (1)
  1. IVIG (IMMUNE GLOBULIN INTRAVENOUS (HUMAN) 10% LIQUID) [Suspect]
     Indication: MYELITIS

REACTIONS (2)
  - Myocardial infarction [None]
  - Lower respiratory tract infection [None]
